FAERS Safety Report 8614225-2 (Version None)
Quarter: 2012Q3

REPORT INFORMATION
  Report Type: 
  Country: None (occurrence: None)
  Receive Date: 20120823
  Receipt Date: 20120817
  Transmission Date: 20120928
  Serious: No
  Sender: FDA-Public Use
  Company Number: US-PFIZER INC-2012202601

PATIENT
  Age: 41 Year
  Sex: Female
  Weight: 87.1 kg

DRUGS (6)
  1. DEPO-PROVERA [Suspect]
     Indication: CONTRACEPTION
     Dosage: 150 MG, EVERY 3 MONTHS
     Route: 030
     Dates: start: 20110301
  2. LAMICTAL [Concomitant]
     Dosage: UNK
  3. CYMBALTA [Concomitant]
     Dosage: UNK
  4. LISINOPRIL AND HYDROCHLOROTHIAZIDE [Concomitant]
     Indication: HYPERTENSION
     Dosage: UNK
  5. KLONOPIN [Concomitant]
     Dosage: UNK
  6. ADDERALL [Concomitant]
     Dosage: UNK

REACTIONS (2)
  - DYSMENORRHOEA [None]
  - METRORRHAGIA [None]
